FAERS Safety Report 10484887 (Version 3)
Quarter: 2014Q4

REPORT INFORMATION
  Report Type: Spontaneous
  Country: JP (occurrence: JP)
  Receive Date: 20140930
  Receipt Date: 20141126
  Transmission Date: 20150528
  Serious: Yes (Life-Threatening, Hospitalization, Other)
  Sender: FDA-Public Use
  Company Number: JP-PFIZER INC-2014266607

PATIENT
  Age: 60 Year
  Sex: Male
  Weight: 57.8 kg

DRUGS (2)
  1. LYRICA [Suspect]
     Active Substance: PREGABALIN
     Indication: NEURALGIA
     Dosage: 25 MG, 1X/DAY
     Route: 048
     Dates: start: 20140523, end: 20140615
  2. LYRICA [Suspect]
     Active Substance: PREGABALIN
     Indication: ANALGESIC THERAPY

REACTIONS (10)
  - Blood lactate dehydrogenase increased [Recovered/Resolved]
  - Body temperature increased [Recovered/Resolved]
  - Feeling abnormal [Recovered/Resolved]
  - Drug-induced liver injury [Recovered/Resolved]
  - C-reactive protein increased [Unknown]
  - Alanine aminotransferase increased [Recovered/Resolved]
  - Abdominal pain [Recovered/Resolved]
  - Disseminated intravascular coagulation [Unknown]
  - Aspartate aminotransferase increased [Recovered/Resolved]
  - Gamma-glutamyltransferase increased [Recovered/Resolved]

NARRATIVE: CASE EVENT DATE: 201406
